FAERS Safety Report 22594886 (Version 1)
Quarter: 2023Q2

REPORT INFORMATION
  Report Type: Spontaneous
  Country: US (occurrence: US)
  Receive Date: 20230613
  Receipt Date: 20230613
  Transmission Date: 20230721
  Serious: Yes (Other)
  Sender: FDA-Public Use
  Company Number: US-BAYER-2023A079449

PATIENT
  Age: 38 Year
  Sex: Female

DRUGS (6)
  1. GADOBUTROL [Suspect]
     Active Substance: GADOBUTROL
  2. ALPRAZOLAM [Concomitant]
     Active Substance: ALPRAZOLAM
  3. BUPROPION [Concomitant]
     Active Substance: BUPROPION
  4. MINOXIDIL [Concomitant]
     Active Substance: MINOXIDIL
  5. SERTRALINE [Concomitant]
     Active Substance: SERTRALINE HYDROCHLORIDE
  6. ETHINYL ESTRADIOL [Concomitant]
     Active Substance: ETHINYL ESTRADIOL

REACTIONS (2)
  - Non-cardiogenic pulmonary oedema [None]
  - Contrast media allergy [None]
